FAERS Safety Report 22634680 (Version 1)
Quarter: 2023Q2

REPORT INFORMATION
  Report Type: Spontaneous
  Country: JP (occurrence: JP)
  Receive Date: 20230623
  Receipt Date: 20230623
  Transmission Date: 20230722
  Serious: Yes (Other)
  Sender: FDA-Public Use
  Company Number: JP-JNJFOC-20230642728

PATIENT

DRUGS (1)
  1. NICORETTE [Suspect]
     Active Substance: NICOTINE
     Indication: Smoking cessation therapy
     Dosage: UNK (1/2 TO 1 PIECE)
     Route: 048

REACTIONS (4)
  - Nausea [Unknown]
  - Wrong technique in product usage process [Unknown]
  - Nicotine dependence [Not Recovered/Not Resolved]
  - Intentional product use issue [Not Recovered/Not Resolved]
